FAERS Safety Report 6769312-0 (Version None)
Quarter: 2010Q2

REPORT INFORMATION
  Report Type: 
  Country: None (occurrence: None)
  Receive Date: 20100615
  Receipt Date: 20100506
  Transmission Date: 20101027
  Serious: No
  Sender: FDA-Public Use
  Company Number: US-JNJFOC-20100502528

PATIENT
  Age: 3 Decade
  Sex: Male

DRUGS (4)
  1. INVEGA SUSTENNA [Suspect]
     Indication: SCHIZOPHRENIA
     Route: 030
  2. ABILIFY [Suspect]
     Indication: SCHIZOPHRENIA
     Route: 048
  3. FANAPT TITRATION PACK [Suspect]
     Indication: SCHIZOPHRENIA
     Route: 048
  4. DEPAKOTE [Suspect]
     Indication: DRUG THERAPY
     Route: 048

REACTIONS (1)
  - OEDEMA PERIPHERAL [None]
